FAERS Safety Report 20591152 (Version 1)
Quarter: 2022Q1

REPORT INFORMATION
  Report Type: Spontaneous
  Country: US (occurrence: US)
  Receive Date: 20220314
  Receipt Date: 20220314
  Transmission Date: 20220423
  Serious: No
  Sender: FDA-Public Use
  Company Number: US-GALDERMA-US2021018167

PATIENT

DRUGS (1)
  1. TRI-LUMA [Suspect]
     Active Substance: FLUOCINOLONE ACETONIDE\HYDROQUINONE\TRETINOIN
     Indication: Skin hyperpigmentation
     Dosage: 1 DOSAGE FORM
     Route: 061

REACTIONS (2)
  - Product use in unapproved indication [Recovered/Resolved]
  - Drug effective for unapproved indication [Recovered/Resolved]
